FAERS Safety Report 5878957-1 (Version None)
Quarter: 2008Q3

REPORT INFORMATION
  Report Type: 
  Country: None (occurrence: None)
  Receive Date: 20080910
  Receipt Date: 20080829
  Transmission Date: 20090109
  Serious: Yes (Hospitalization)
  Sender: FDA-Public Use
  Company Number: 2008MB000089

PATIENT
  Age: 64 Year
  Sex: Male

DRUGS (17)
  1. CEPHALEXIN [Suspect]
     Indication: URINARY TRACT INFECTION
     Dosage: 500 MG; TID; PO
     Route: 048
     Dates: start: 20080707, end: 20080714
  2. BISOPROLOL FUMARATE [Suspect]
     Indication: HYPERTENSION
     Dosage: 2.5 MG; QD; PO
     Route: 048
     Dates: end: 20080717
  3. ALPHOSYL HC [Concomitant]
  4. ASPIRIN [Concomitant]
  5. BETAMETHASONE [Concomitant]
  6. CALCIPOTRIENE [Concomitant]
  7. CETIRIZINE HCL [Concomitant]
  8. DIPROBASE /01210201/ [Concomitant]
  9. HYDROCORTISONE [Concomitant]
  10. ISPAGHULA [Concomitant]
  11. MACROGOL [Concomitant]
  12. MANEVAC [Concomitant]
  13. MICONAZOLE [Concomitant]
  14. PRAGMATAR [Concomitant]
  15. SIMVASTATIN [Concomitant]
  16. TOLTERODINE [Concomitant]
  17. ZOPICLONE [Concomitant]

REACTIONS (4)
  - LOSS OF CONSCIOUSNESS [None]
  - PRURITUS GENERALISED [None]
  - RASH GENERALISED [None]
  - RASH MACULAR [None]
